FAERS Safety Report 16481601 (Version 1)
Quarter: 2019Q2

REPORT INFORMATION
  Report Type: Spontaneous
  Country: BR (occurrence: BR)
  Receive Date: 20190627
  Receipt Date: 20190627
  Transmission Date: 20190711
  Serious: Yes (Death, Life-Threatening, Hospitalization, Other)
  Sender: FDA-Public Use
  Company Number: BR-ACCORD-134823

PATIENT
  Age: 54 Year
  Sex: Female

DRUGS (17)
  1. ANTITHYMOCYTE IMMUNOGLOBULIN [Suspect]
     Active Substance: THYMOCYTE IMMUNE GLOBULIN NOS
     Indication: IMMUNOSUPPRESSANT DRUG THERAPY
     Dosage: INDUCTION IMMUNOSUPPRESSION;4.5 GRAM/KG
     Dates: start: 20180616
  2. MYCOPHENOLATE MOFETIL. [Suspect]
     Active Substance: MYCOPHENOLATE MOFETIL
     Indication: LUPUS NEPHRITIS
     Dates: start: 201809, end: 2018
  3. TACROLIMUS. [Suspect]
     Active Substance: TACROLIMUS
     Indication: LUPUS NEPHRITIS
     Dosage: MAINTENANCE IMMUNOSUPPRESSION 2 MG/KG
     Dates: start: 201806, end: 2018
  4. PREDNISONE. [Suspect]
     Active Substance: PREDNISONE
     Indication: LUPUS NEPHRITIS
     Dosage: ALSO RECEIVED 60 MG FROM SEP-2018 TO 2018,50 MG OCT-2018
     Dates: start: 201806, end: 2018
  5. MYCOPHENOLATE MOFETIL. [Suspect]
     Active Substance: MYCOPHENOLATE MOFETIL
     Indication: IMMUNOSUPPRESSANT DRUG THERAPY
     Dosage: MAINTENANCE IMMUNOSUPPRESSION
     Dates: start: 201806, end: 2018
  6. CYCLOPHOSPHAMIDE/CYCLOPHOSPHAMIDE MONOHYDRATE [Suspect]
     Active Substance: CYCLOPHOSPHAMIDE
     Indication: LUPUS NEPHRITIS
     Dosage: INDUCTION THERAPY(.5 G/M2 860 MG ON THE FOURTH DAY)
     Dates: start: 201808, end: 2018
  7. TACROLIMUS. [Suspect]
     Active Substance: TACROLIMUS
     Indication: LUPUS NEPHRITIS
     Dates: start: 201809, end: 2018
  8. PREDNISONE. [Suspect]
     Active Substance: PREDNISONE
     Indication: LUPUS NEPHRITIS
     Dates: start: 201810
  9. PREDNISONE. [Suspect]
     Active Substance: PREDNISONE
     Indication: IMMUNOSUPPRESSANT DRUG THERAPY
     Dosage: MAINTENANCE IMMUNOSUPPRESSION
     Dates: start: 201806, end: 2018
  10. METHYLPREDNISOLONE. [Suspect]
     Active Substance: METHYLPREDNISOLONE
     Indication: IMMUNOSUPPRESSANT DRUG THERAPY
     Dosage: INDUCTION THERAPY
     Dates: start: 201808, end: 201808
  11. MYCOPHENOLATE MOFETIL. [Suspect]
     Active Substance: MYCOPHENOLATE MOFETIL
     Indication: IMMUNOSUPPRESSANT DRUG THERAPY
     Dates: start: 201810
  12. TACROLIMUS. [Suspect]
     Active Substance: TACROLIMUS
     Indication: LUPUS NEPHRITIS
     Dosage: ALSO RECEIVED 5 G FROM SEP-2018 13 MG FROM JUN-2018
     Dates: start: 201810, end: 2018
  13. TACROLIMUS. [Suspect]
     Active Substance: TACROLIMUS
     Indication: IMMUNOSUPPRESSANT DRUG THERAPY
     Dates: start: 201810
  14. PREDNISONE. [Suspect]
     Active Substance: PREDNISONE
     Indication: LUPUS NEPHRITIS
     Dates: start: 201809, end: 2018
  15. MYCOPHENOLIC ACID. [Suspect]
     Active Substance: MYCOPHENOLIC ACID
     Indication: IMMUNOSUPPRESSANT DRUG THERAPY
     Dosage: ALSO RECEIVED 2 GRAM FROM JUN-2018 TO 2018 AND OCT-2018
     Dates: start: 201809, end: 2018
  16. ERTAPENEM/ERTAPENEM SODIUM [Concomitant]
     Indication: KLEBSIELLA INFECTION
     Dates: start: 20180701, end: 2018
  17. METHYLPREDNISOLONE. [Suspect]
     Active Substance: METHYLPREDNISOLONE
     Indication: LUPUS NEPHRITIS
     Dosage: INDUCTION THERAPY
     Dates: start: 201808, end: 201808

REACTIONS (7)
  - Neutropenia [Recovered/Resolved]
  - Septic shock [Fatal]
  - Febrile neutropenia [Recovered/Resolved]
  - Cellulitis [Unknown]
  - Anaemia [Recovered/Resolved]
  - Colitis [Recovered/Resolved]
  - Erysipelas [Fatal]

NARRATIVE: CASE EVENT DATE: 2018
